FAERS Safety Report 6531812-6 (Version None)
Quarter: 2010Q1

REPORT INFORMATION
  Report Type: 
  Country: None (occurrence: None)
  Receive Date: 20100107
  Receipt Date: 20100107
  Transmission Date: 20100710
  Serious: Yes (Disabling)
  Sender: FDA-Public Use
  Company Number: None

PATIENT
  Age: 32 Year
  Sex: Female
  Weight: 83.9154 kg

DRUGS (1)
  1. CHANTIX [Suspect]
     Indication: SMOKING CESSATION THERAPY
     Dosage: 2 PER DAY ONE NIGHT ONE MORI PO
     Route: 048
     Dates: start: 20090915, end: 20091121

REACTIONS (4)
  - DEPRESSION [None]
  - INSOMNIA [None]
  - PRODUCT QUALITY ISSUE [None]
  - SELF-INJURIOUS IDEATION [None]
